FAERS Safety Report 6691988-7 (Version None)
Quarter: 2010Q2

REPORT INFORMATION
  Report Type: 
  Country: None (occurrence: None)
  Receive Date: 20100422
  Receipt Date: 20100419
  Transmission Date: 20101027
  Serious: Yes (Hospitalization, Disabling)
  Sender: FDA-Public Use
  Company Number: BR-ROCHE-684839

PATIENT
  Sex: Female
  Weight: 102 kg

DRUGS (15)
  1. TOCILIZUMAB [Suspect]
     Indication: RHEUMATOID ARTHRITIS
     Route: 042
     Dates: start: 20060620
  2. TOCILIZUMAB [Suspect]
     Dosage: FORM REPORTED AS 40.8 ML
     Route: 042
     Dates: start: 20091109
  3. TOCILIZUMAB [Suspect]
     Route: 042
     Dates: start: 20091207
  4. TOCILIZUMAB [Suspect]
     Route: 042
     Dates: start: 20100104
  5. TOCILIZUMAB [Suspect]
     Dosage: LAST DOSE PRIOR TO SAE 01 FEB 2010,DOSEGE FORM40.8 ML, TEMPORARILY INTERRUPTED.
     Route: 042
     Dates: start: 20090201
  6. TOCILIZUMAB [Suspect]
     Dosage: THE PATIENT RECEIVED THIS DRUG IN DOUBLE- BLINDED MRA CORE STUDY WA18063
     Route: 042
  7. METHOTREXATE [Suspect]
     Indication: DRUG USE FOR UNKNOWN INDICATION
     Dosage: ROUTE: VO
     Route: 050
     Dates: start: 20050401
  8. METHOTREXATE [Suspect]
     Route: 050
     Dates: start: 20071211, end: 20100202
  9. PREDNISONE [Suspect]
     Indication: DRUG USE FOR UNKNOWN INDICATION
     Route: 050
     Dates: start: 20070523
  10. PREDNISONE [Suspect]
     Route: 050
     Dates: start: 20100121
  11. PREDNISONE [Suspect]
     Route: 050
     Dates: start: 20100302
  12. SULPHASALAZINE [Concomitant]
     Dosage: ROUTE: VO
     Dates: start: 20091014
  13. FOLIC ACID [Concomitant]
     Dosage: ROUTE: VO
     Dates: start: 20070109
  14. IBUPROFEN [Concomitant]
     Dosage: ROUTE: VO, FREQUENCY: QD
     Dates: start: 20090811, end: 20100201
  15. ETORICOXIB [Concomitant]
     Dates: start: 20100202, end: 20100208

REACTIONS (2)
  - CELLULITIS [None]
  - SKIN ULCER [None]
